FAERS Safety Report 6191560-1 (Version None)
Quarter: 2009Q2

REPORT INFORMATION
  Report Type: 
  Country: None (occurrence: None)
  Receive Date: 20090515
  Receipt Date: 20090512
  Transmission Date: 20091009
  Serious: Yes (Hospitalization)
  Sender: FDA-Public Use
  Company Number: JP-BAYER-200813206BYL

PATIENT
  Age: 49 Year
  Sex: Female
  Weight: 66 kg

DRUGS (7)
  1. NEXAVAR [Suspect]
     Indication: RENAL CELL CARCINOMA STAGE IV
     Dosage: TOTAL DAILY DOSE: 800 MG  UNIT DOSE: 200 MG
     Route: 048
     Dates: start: 20081201, end: 20081212
  2. NEXAVAR [Suspect]
     Dosage: UNIT DOSE: 200 MG
     Route: 048
     Dates: start: 20081222
  3. OMEPRAL [Concomitant]
     Route: 048
     Dates: start: 20081201
  4. LAXOBERON [Concomitant]
     Route: 048
     Dates: start: 20081210, end: 20081217
  5. FLUITRAN [Concomitant]
     Route: 048
     Dates: start: 20090102
  6. GASMOTIN [Concomitant]
     Route: 048
     Dates: start: 20090226, end: 20090312
  7. ALOSENN [Concomitant]
     Route: 048
     Dates: start: 20090226, end: 20090312

REACTIONS (4)
  - HYPERTENSION [None]
  - OSTEOARTHRITIS [None]
  - PALMAR-PLANTAR ERYTHRODYSAESTHESIA SYNDROME [None]
  - RASH GENERALISED [None]
